FAERS Safety Report 20975438 (Version 1)
Quarter: 2022Q2

REPORT INFORMATION
  Report Type: Spontaneous
  Country: FR (occurrence: FR)
  Receive Date: 20220617
  Receipt Date: 20220617
  Transmission Date: 20220720
  Serious: Yes (Hospitalization)
  Sender: FDA-Public Use
  Company Number: None

PATIENT
  Age: 59 Year
  Sex: Male

DRUGS (2)
  1. KETOPROFEN [Suspect]
     Active Substance: KETOPROFEN
     Indication: Haematuria
     Dosage: 2 CP/J
     Route: 048
     Dates: start: 20210818, end: 20210916
  2. OFLOXACIN [Suspect]
     Active Substance: OFLOXACIN
     Indication: Haematuria
     Dosage: UNK
     Route: 048
     Dates: start: 20210906, end: 20210916

REACTIONS (1)
  - Acute kidney injury [Recovered/Resolved with Sequelae]
